FAERS Safety Report 6420458-6 (Version None)
Quarter: 2009Q4

REPORT INFORMATION
  Report Type: 
  Country: None (occurrence: None)
  Receive Date: 20091021
  Receipt Date: 20090817
  Transmission Date: 20100525
  Serious: No
  Sender: FDA-Public Use
  Company Number: ALL1-2009-02367

PATIENT
  Age: 46 Year
  Sex: Female

DRUGS (2)
  1. VYVANSE [Suspect]
     Indication: DISTURBANCE IN ATTENTION
     Dosage: 20 MG, 1X/DAY:QD, ORAL
     Route: 048
     Dates: start: 20090806, end: 20090813
  2. VISTARIL (HYDROXYZINE HYDROCHLORIDE) [Concomitant]

REACTIONS (6)
  - DYSPNOEA [None]
  - EAR DISCOMFORT [None]
  - FEELING HOT [None]
  - HYPERTENSION [None]
  - SINUSITIS [None]
  - THERAPEUTIC RESPONSE UNEXPECTED [None]
